FAERS Safety Report 10175917 (Version 1)
Quarter: 2014Q2

REPORT INFORMATION
  Report Type: Spontaneous
  Country: FR (occurrence: FR)
  Receive Date: 20140516
  Receipt Date: 20140516
  Transmission Date: 20141212
  Serious: Yes (Hospitalization, Other)
  Sender: FDA-Public Use
  Company Number: PHHY2014FR059005

PATIENT
  Age: 60 Year
  Sex: Male

DRUGS (9)
  1. ESIDREX [Suspect]
     Indication: RENAL IMPAIRMENT
     Dosage: 25 MG, QD
     Route: 048
     Dates: start: 20131125, end: 201401
  2. ZOVIRAX [Suspect]
     Indication: HERPES SIMPLEX MENINGOENCEPHALITIS
     Dosage: UNK UKN, UNK
     Route: 042
     Dates: start: 201312, end: 201312
  3. GADOLINIUM [Suspect]
     Indication: NUCLEAR MAGNETIC RESONANCE IMAGING
     Dosage: UNK UKN, UNK
     Route: 042
     Dates: start: 20131223, end: 20131223
  4. CEFTRIAXONE DISODIUM SALT HEMIHEPTAHYDRATE [Suspect]
     Dosage: UNK UKN, UNK
     Route: 042
     Dates: start: 201312, end: 201312
  5. XATRAL [Suspect]
     Indication: BENIGN PROSTATIC HYPERPLASIA
     Dosage: 10 MG, QD
     Route: 048
     Dates: start: 20131128
  6. TERALITHE [Suspect]
     Indication: BIPOLAR DISORDER
     Dosage: 250 MG, TID
     Route: 048
  7. TERALITHE [Suspect]
     Dosage: 250 MG, QD
     Route: 048
     Dates: start: 20131128, end: 201312
  8. ANAFRANIL [Concomitant]
     Indication: BIPOLAR DISORDER
     Dosage: 75 MG, QD
     Route: 048
  9. TAHOR [Concomitant]
     Indication: DYSLIPIDAEMIA
     Dosage: 10 MG, QD
     Route: 048
     Dates: end: 201401

REACTIONS (3)
  - Hepatocellular injury [Recovering/Resolving]
  - Renal failure acute [Recovered/Resolved]
  - Hypernatraemia [Recovered/Resolved]
